FAERS Safety Report 4596773-8 (Version None)
Quarter: 2005Q1

REPORT INFORMATION
  Report Type: 
  Country: None (occurrence: None)
  Receive Date: 20050228
  Receipt Date: 20040719
  Transmission Date: 20050727
  Serious: Yes (Hospitalization)
  Sender: FDA-Public Use
  Company Number: 8532

PATIENT
  Age: 47 Year
  Sex: Female

DRUGS (1)
  1. METHOTREXATE [Suspect]
     Dosage: 25 MG BID

REACTIONS (10)
  - ALANINE AMINOTRANSFERASE INCREASED [None]
  - ALVEOLITIS ALLERGIC [None]
  - ASPARTATE AMINOTRANSFERASE INCREASED [None]
  - BLOOD PH INCREASED [None]
  - BLOOD PRESSURE DECREASED [None]
  - ENTERITIS [None]
  - HEART RATE INCREASED [None]
  - HYPERSENSITIVITY [None]
  - HYPOXIA [None]
  - PYREXIA [None]
